FAERS Safety Report 12670465 (Version 1)
Quarter: 2016Q3

REPORT INFORMATION
  Report Type: Spontaneous
  Country: US (occurrence: US)
  Receive Date: 20160822
  Receipt Date: 20160822
  Transmission Date: 20161109
  Serious: No
  Sender: FDA-Public Use
  Company Number: US-GLAXOSMITHKLINE-US2016113021

PATIENT
  Age: 55 Year
  Sex: Female

DRUGS (24)
  1. CALCIUM [Concomitant]
     Active Substance: CALCIUM
  2. GLIMEPIRIDE. [Concomitant]
     Active Substance: GLIMEPIRIDE
  3. OMEPRAZOLE. [Concomitant]
     Active Substance: OMEPRAZOLE
  4. TRAZODONE [Concomitant]
     Active Substance: TRAZODONE HYDROCHLORIDE
  5. WARFARIN [Concomitant]
     Active Substance: WARFARIN
  6. AMLODIPINE [Concomitant]
     Active Substance: AMLODIPINE BESYLATE
  7. CLONAZEPAM. [Concomitant]
     Active Substance: CLONAZEPAM
  8. LOSARTAN. [Concomitant]
     Active Substance: LOSARTAN
  9. BUPROPION XL [Concomitant]
     Active Substance: BUPROPION
  10. LASIX [Concomitant]
     Active Substance: FUROSEMIDE
  11. BETA SITOSTEROL [Concomitant]
  12. METFORMIN [Concomitant]
     Active Substance: METFORMIN HYDROCHLORIDE
  13. MIRTAZAPINE. [Concomitant]
     Active Substance: MIRTAZAPINE
  14. TYLENOL [Concomitant]
     Active Substance: ACETAMINOPHEN
  15. CARVEDILOL. [Concomitant]
     Active Substance: CARVEDILOL
  16. FOLIC ACID. [Concomitant]
     Active Substance: FOLIC ACID
  17. PRAVASTATIN. [Concomitant]
     Active Substance: PRAVASTATIN
  18. FLOVENT DISKUS [Suspect]
     Active Substance: FLUTICASONE PROPIONATE
     Indication: LUNG DISORDER
     Dosage: 3 PUFF(S), 1D
     Route: 055
  19. VITAMIN B12 [Concomitant]
     Active Substance: CYANOCOBALAMIN
  20. DESIPRAMINE [Concomitant]
     Active Substance: DESIPRAMINE
  21. FLEXERIL [Concomitant]
     Active Substance: CYCLOBENZAPRINE HYDROCHLORIDE
  22. GABAPENTIN. [Concomitant]
     Active Substance: GABAPENTIN
  23. METAXALONE. [Concomitant]
     Active Substance: METAXALONE
  24. OXYCODONE [Concomitant]
     Active Substance: OXYCODONE

REACTIONS (3)
  - Product use issue [Unknown]
  - Arthralgia [Recovering/Resolving]
  - Back pain [Recovering/Resolving]

NARRATIVE: CASE EVENT DATE: 20160731
